FAERS Safety Report 4742209-3 (Version None)
Quarter: 2005Q3

REPORT INFORMATION
  Report Type: 
  Country: None (occurrence: None)
  Receive Date: 20050811
  Receipt Date: 20050321
  Transmission Date: 20060218
  Serious: No
  Sender: FDA-Public Use
  Company Number: US-GLAXOSMITHKLINE-A0550655A

PATIENT
  Age: 12 Year
  Sex: Female

DRUGS (5)
  1. PAXIL CR [Suspect]
     Indication: DEPRESSION
     Dosage: 12.5MG PER DAY
     Route: 048
     Dates: start: 20050307
  2. ATIVAN [Concomitant]
  3. PRILOSEC [Concomitant]
  4. IBUPROFEN [Concomitant]
  5. MIRALAX [Concomitant]

REACTIONS (12)
  - ABDOMINAL PAIN [None]
  - AGITATION [None]
  - DYSURIA [None]
  - HEADACHE [None]
  - HOT FLUSH [None]
  - IRRITABILITY [None]
  - MOOD SWINGS [None]
  - NAUSEA [None]
  - PRURITUS [None]
  - URETHRAL PAIN [None]
  - URINARY TRACT DISORDER [None]
  - VAGINAL BURNING SENSATION [None]
